FAERS Safety Report 10939612 (Version 1)
Quarter: 2015Q1

REPORT INFORMATION
  Report Type: Spontaneous
  Country: US (occurrence: US)
  Receive Date: 20150322
  Receipt Date: 20150322
  Transmission Date: 20150721
  Serious: No
  Sender: FDA-Public Use
  Company Number: US-ASTRAZENECA-2013SE89694

PATIENT
  Age: 27548 Day
  Sex: Male
  Weight: 86.6 kg

DRUGS (9)
  1. AMARYL [Concomitant]
     Active Substance: GLIMEPIRIDE
     Indication: TYPE 2 DIABETES MELLITUS
     Dates: start: 2001
  2. ACTOS [Concomitant]
     Active Substance: PIOGLITAZONE HYDROCHLORIDE
     Indication: TYPE 2 DIABETES MELLITUS
     Dates: start: 2001
  3. QUINAPRIL [Concomitant]
     Active Substance: QUINAPRIL\QUINAPRIL HYDROCHLORIDE
     Dosage: 20 DAILY
  4. GLIMEPIRIDE. [Concomitant]
     Active Substance: GLIMEPIRIDE
  5. ASPIRIN. [Concomitant]
     Active Substance: ASPIRIN
  6. BYDUREON [Suspect]
     Active Substance: EXENATIDE
     Indication: TYPE 2 DIABETES MELLITUS
     Route: 058
     Dates: start: 2012
  7. POPROL [Concomitant]
  8. LIPITOR [Concomitant]
     Active Substance: ATORVASTATIN CALCIUM
  9. BYDUREON [Suspect]
     Active Substance: EXENATIDE
     Indication: TYPE 2 DIABETES MELLITUS
     Route: 058
     Dates: start: 2014

REACTIONS (6)
  - Injection site pain [Recovered/Resolved]
  - Laryngitis [Not Recovered/Not Resolved]
  - Underdose [Recovered/Resolved]
  - Underdose [Recovered/Resolved]
  - Injection site haemorrhage [Recovered/Resolved]
  - Injury associated with device [Recovered/Resolved]

NARRATIVE: CASE EVENT DATE: 20131124
